FAERS Safety Report 21391839 (Version 1)
Quarter: 2022Q3

REPORT INFORMATION
  Report Type: Spontaneous
  Country: HR (occurrence: HR)
  Receive Date: 20220929
  Receipt Date: 20220929
  Transmission Date: 20221027
  Serious: Yes (Other)
  Sender: FDA-Public Use
  Company Number: None

PATIENT
  Age: 10 Year
  Sex: Female
  Weight: 25 kg

DRUGS (1)
  1. ACYCLOVIR [Suspect]
     Active Substance: ACYCLOVIR
     Indication: Encephalitis viral
     Route: 042
     Dates: start: 20220826, end: 20220901

REACTIONS (4)
  - Renal failure [Recovered/Resolved]
  - Oliguria [Recovered/Resolved]
  - Blood creatinine increased [Recovered/Resolved]
  - Blood urea increased [Recovered/Resolved]

NARRATIVE: CASE EVENT DATE: 20220830
